FAERS Safety Report 9243077 (Version 2)
Quarter: 2014Q1

REPORT INFORMATION
  Report Type: Report from Study
  Country: CZ (occurrence: CZ)
  Receive Date: 20130419
  Receipt Date: 20140306
  Transmission Date: 20141002
  Serious: Yes (Hospitalization)
  Sender: FDA-Public Use
  Company Number: CZ-UCBSA-082889

PATIENT
  Age: 40 Year
  Sex: Male

DRUGS (3)
  1. CIMZIA [Suspect]
     Indication: RHEUMATOID ARTHRITIS
     Route: 058
     Dates: start: 20120424, end: 20130108
  2. METHOTREXATE [Concomitant]
     Dates: start: 20111102
  3. LEFLUNOMIDE [Concomitant]
     Dates: start: 20120115

REACTIONS (1)
  - Oral fibroma [Recovered/Resolved]
